FAERS Safety Report 8857703 (Version 1)
Quarter: 2012Q4

REPORT INFORMATION
  Report Type: 
  Country: US (occurrence: US)
  Receive Date: 20121024
  Receipt Date: 20121024
  Transmission Date: 20130627
  Serious: Yes (Other)
  Sender: FDA-Public Use
  Company Number: US-MPIJNJ-2012-07270

PATIENT

DRUGS (6)
  1. VELCADE [Suspect]
     Indication: IMMUNOSUPPRESSION
  2. MELPHALAN [Suspect]
     Indication: IMMUNOSUPPRESSION
  3. DEXAMETHASONE [Suspect]
     Indication: IMMUNOSUPPRESSION
  4. THALIDOMIDE [Suspect]
     Indication: IMMUNOSUPPRESSION
  5. GEMCITABINE [Suspect]
     Indication: IMMUNOSUPPRESSION
  6. CARMUSTINE [Suspect]
     Indication: IMMUNOSUPPRESSION

REACTIONS (2)
  - Cytomegalovirus viraemia [Unknown]
  - Pyrexia [Unknown]
